FAERS Safety Report 22284258 (Version 2)
Quarter: 2023Q2

REPORT INFORMATION
  Report Type: Spontaneous
  Country: TW (occurrence: TW)
  Receive Date: 20230504
  Receipt Date: 20230519
  Transmission Date: 20230722
  Serious: Yes (Hospitalization)
  Sender: FDA-Public Use
  Company Number: TW-TEVA-2023-TW-2883437

PATIENT
  Age: 36 Year
  Sex: Female

DRUGS (12)
  1. FENTANYL [Interacting]
     Active Substance: FENTANYL
     Indication: Procedural pain
     Dosage: 100MICROG
     Route: 065
  2. FENTANYL [Interacting]
     Active Substance: FENTANYL
     Indication: Induction of anaesthesia
     Dosage: 100 MCG
     Route: 065
  3. FENTANYL [Interacting]
     Active Substance: FENTANYL
     Indication: Prophylaxis
  4. DINALBUPHINE SEBACATE [Interacting]
     Active Substance: DINALBUPHINE SEBACATE
     Indication: Procedural pain
     Dosage: 150MG RECEIVED THIRTEEN HOURS PRIOR ANESTHESIA
     Route: 030
  5. DINALBUPHINE SEBACATE [Interacting]
     Active Substance: DINALBUPHINE SEBACATE
     Indication: Prophylaxis
  6. MORPHINE [Concomitant]
     Active Substance: MORPHINE
     Indication: Procedural pain
     Dosage: 10MG
     Route: 065
  7. MORPHINE [Concomitant]
     Active Substance: MORPHINE
     Indication: Prophylaxis
  8. KETOROLAC [Concomitant]
     Active Substance: KETOROLAC TROMETHAMINE
     Indication: Procedural pain
     Dosage: 30MG
     Route: 065
  9. KETOROLAC [Concomitant]
     Active Substance: KETOROLAC TROMETHAMINE
     Indication: Prophylaxis
  10. DESFLURANE [Concomitant]
     Active Substance: DESFLURANE
     Indication: Maintenance of anaesthesia
     Route: 065
  11. ROCURONIUM [Concomitant]
     Active Substance: ROCURONIUM BROMIDE
     Indication: Induction of anaesthesia
     Dosage: 10MG
     Route: 065
  12. PROPOFOL [Concomitant]
     Active Substance: PROPOFOL
     Indication: Induction of anaesthesia
     Dosage: 120MG
     Route: 065

REACTIONS (2)
  - Hyperaesthesia [Recovered/Resolved]
  - Drug interaction [Recovered/Resolved]
